FAERS Safety Report 4851658-4 (Version None)
Quarter: 2005Q4

REPORT INFORMATION
  Report Type: 
  Country: None (occurrence: None)
  Receive Date: 20051212
  Receipt Date: 20050912
  Transmission Date: 20060501
  Serious: Yes (Hospitalization)
  Sender: FDA-Public Use
  Company Number: CA-MERCK-0509CAN00078

PATIENT
  Age: 68 Year
  Sex: Male
  Weight: 109 kg

DRUGS (8)
  1. VIOXX [Suspect]
     Indication: ARTHRALGIA
     Route: 048
     Dates: start: 20020201, end: 20040901
  2. TAMSULOSIN HYDROCHLORIDE [Concomitant]
     Indication: HYPERTROPHIC CARDIOMYOPATHY
     Route: 065
     Dates: start: 20010101
  3. ASPIRIN [Concomitant]
     Indication: PROPHYLAXIS
     Route: 065
  4. VERAPAMIL [Concomitant]
     Indication: CHEST PAIN
     Route: 065
     Dates: start: 20010101
  5. VERAPAMIL [Concomitant]
     Indication: CARDIAC DISORDER
     Route: 065
     Dates: start: 20010101
  6. ACEBUTOLOL HYDROCHLORIDE [Concomitant]
     Indication: CHEST PAIN
     Route: 065
     Dates: start: 20000101
  7. ACEBUTOLOL HYDROCHLORIDE [Concomitant]
     Indication: HYPERTENSION
     Route: 065
     Dates: start: 20000101
  8. INDOCIN [Concomitant]
     Indication: PAIN
     Route: 065
     Dates: start: 19980101

REACTIONS (10)
  - ACUTE MYOCARDIAL INFARCTION [None]
  - ANXIETY [None]
  - BLOOD PRESSURE INCREASED [None]
  - CARDIAC PACEMAKER MALFUNCTION [None]
  - DEVICE RELATED INFECTION [None]
  - EMOTIONAL DISTRESS [None]
  - HEPARIN-INDUCED THROMBOCYTOPENIA [None]
  - MACULAR DEGENERATION [None]
  - PLATELET AGGREGATION INCREASED [None]
  - STAPHYLOCOCCAL SEPSIS [None]
